FAERS Safety Report 14444078 (Version 1)
Quarter: 2018Q1

REPORT INFORMATION
  Report Type: Spontaneous
  Country: US (occurrence: US)
  Receive Date: 20180125
  Receipt Date: 20180125
  Transmission Date: 20180509
  Serious: No
  Sender: FDA-Public Use
  Company Number: US-TEIKOKU PHARMA USA-TPU2017-00783

PATIENT
  Sex: Female

DRUGS (7)
  1. ASPIRIN. [Concomitant]
     Active Substance: ASPIRIN
     Indication: PAIN
  2. METHOCARBAMOL. [Concomitant]
     Active Substance: METHOCARBAMOL
  3. MELOXICAM. [Concomitant]
     Active Substance: MELOXICAM
  4. LIDOCAINE PATCH [Suspect]
     Active Substance: LIDOCAINE
     Indication: FIBROMYALGIA
     Dosage: 2 PATCHES APPLIED TO FIBROMYALGIA POINTS, SORE POINTS, FOR 12 HOURS ON.
     Route: 061
  5. CYMBALTA [Concomitant]
     Active Substance: DULOXETINE HYDROCHLORIDE
  6. CYCLOBENZAPRINE. [Concomitant]
     Active Substance: CYCLOBENZAPRINE
     Indication: MUSCLE RELAXANT THERAPY
  7. LYRICA [Concomitant]
     Active Substance: PREGABALIN
     Indication: FIBROMYALGIA

REACTIONS (5)
  - Ear swelling [Unknown]
  - Pain in extremity [Unknown]
  - Urticaria [Unknown]
  - Vertebral foraminal stenosis [Unknown]
  - Pain [Unknown]

NARRATIVE: CASE EVENT DATE: 2017
